FAERS Safety Report 5792554-8 (Version None)
Quarter: 2008Q2

REPORT INFORMATION
  Report Type: 
  Country: None (occurrence: None)
  Receive Date: 20080626
  Receipt Date: 20080618
  Transmission Date: 20081010
  Serious: Yes (Hospitalization, Other)
  Sender: FDA-Public Use
  Company Number: US-AMGEN-QUU276590

PATIENT
  Sex: Female
  Weight: 109 kg

DRUGS (12)
  1. ENBREL [Suspect]
     Indication: PSORIASIS
     Route: 058
     Dates: start: 20071227, end: 20080422
  2. SYNTHROID [Concomitant]
     Route: 048
  3. TRIAMTERENE AND HYDROCHLOROTHIAZIDE [Concomitant]
  4. GLIMEPIRIDE [Concomitant]
     Route: 048
  5. ACIPHEX [Concomitant]
  6. ASPIRIN [Concomitant]
  7. FLEXERIL [Concomitant]
  8. AQUAPHOR [Concomitant]
  9. XALATAN [Concomitant]
  10. ALPHAGAN [Concomitant]
  11. MILK OF MAGNESIA [Concomitant]
  12. IRON [Concomitant]

REACTIONS (12)
  - ANAEMIA [None]
  - FATIGUE [None]
  - GASTRITIS [None]
  - HAEMATEMESIS [None]
  - HIATUS HERNIA [None]
  - ILEUS [None]
  - LEUKOPENIA [None]
  - METASTASES TO BONE [None]
  - OEDEMA PERIPHERAL [None]
  - PAIN [None]
  - PNEUMOTHORAX [None]
  - UTERINE LEIOMYOMA [None]
